FAERS Safety Report 4781564-5 (Version None)
Quarter: 2005Q3

REPORT INFORMATION
  Report Type: 
  Country: None (occurrence: None)
  Receive Date: 20050928
  Receipt Date: 20050920
  Transmission Date: 20060218
  Serious: Yes (Other)
  Sender: FDA-Public Use
  Company Number: PHEH2005US10472

PATIENT
  Age: 66 Year
  Sex: Female

DRUGS (1)
  1. TEGRETOL [Suspect]
     Indication: MULTIPLE SCLEROSIS
     Dosage: 1000 MG, QD

REACTIONS (6)
  - BIOPSY PLEURA ABNORMAL [None]
  - DYSPNOEA [None]
  - EOSINOPHILIA [None]
  - PLEURAL EFFUSION [None]
  - PLEURAL FIBROSIS [None]
  - PLEURAL NEOPLASM [None]
